FAERS Safety Report 8451542-3 (Version None)
Quarter: 2012Q2

REPORT INFORMATION
  Report Type: 
  Country: None (occurrence: None)
  Receive Date: 20120620
  Receipt Date: 20120306
  Transmission Date: 20120825
  Serious: No
  Sender: FDA-Public Use
  Company Number: US-VERTEX PHARMACEUTICALS INC.-AE-2012-003252

PATIENT
  Sex: Male
  Weight: 91.708 kg

DRUGS (6)
  1. RIBAVIRIN [Concomitant]
     Indication: HEPATITIS C
     Route: 048
     Dates: start: 20120227
  2. PEGASYS [Concomitant]
     Indication: HEPATITIS C
     Route: 058
     Dates: start: 20120227
  3. METFORMIN HCL [Concomitant]
     Route: 048
  4. INCIVEK [Suspect]
     Indication: HEPATITIS C
     Route: 048
     Dates: start: 20120227
  5. ACTOS [Concomitant]
     Route: 048
  6. BENAZEPRIL HYDROCHLORIDE [Concomitant]
     Route: 048

REACTIONS (3)
  - INSOMNIA [None]
  - ANAL PRURITUS [None]
  - PRURITUS [None]
